FAERS Safety Report 10207696 (Version 2)
Quarter: 2014Q2

REPORT INFORMATION
  Report Type: Spontaneous
  Country: US (occurrence: US)
  Receive Date: 20140530
  Receipt Date: 20140609
  Transmission Date: 20141212
  Serious: Yes (Death, Hospitalization)
  Sender: FDA-Public Use
  Company Number: US-B.I. PHARMACEUTICALS,INC./RIDGEFIELD-2014-BI-24049BP

PATIENT
  Age: 96 Year
  Sex: Female

DRUGS (7)
  1. PRADAXA [Suspect]
     Indication: ATRIAL FIBRILLATION
     Dosage: 150 MG
     Route: 048
     Dates: start: 20130910
  2. DIGOXIN [Concomitant]
     Route: 065
  3. FUROSEMIDE [Concomitant]
     Dosage: 40 MG
     Route: 065
  4. LEVOTHYROXINE [Concomitant]
     Dosage: 50 MCG
     Route: 065
  5. METOPROLOL [Concomitant]
     Dosage: 100 MG
     Route: 048
  6. METOPROLOL [Concomitant]
     Dosage: 30 MG
     Route: 042
  7. POTASSIUM CHLORIDE [Concomitant]
     Dosage: 20 MEQ
     Route: 065

REACTIONS (4)
  - Atrioventricular dissociation [Fatal]
  - Haematemesis [Unknown]
  - Rectal haemorrhage [Unknown]
  - Hypotension [Unknown]
